FAERS Safety Report 7636537-1 (Version None)
Quarter: 2011Q3

REPORT INFORMATION
  Report Type: 
  Country: None (occurrence: None)
  Receive Date: 20110726
  Receipt Date: 20110715
  Transmission Date: 20111222
  Serious: Yes (Other)
  Sender: FDA-Public Use
  Company Number: HR-JNJFOC-20101207080

PATIENT
  Sex: Male
  Weight: 67 kg

DRUGS (1)
  1. STELARA [Suspect]
     Indication: PSORIASIS
     Route: 058
     Dates: start: 20100326, end: 20101014

REACTIONS (2)
  - TONGUE CANCER METASTATIC [None]
  - PSORIASIS [None]
